FAERS Safety Report 10615929 (Version 1)
Quarter: 2014Q4

REPORT INFORMATION
  Report Type: Spontaneous
  Country: US (occurrence: None)
  Receive Date: 20141125
  Receipt Date: 20141125
  Transmission Date: 20150529
  Serious: Yes (Hospitalization)
  Sender: FDA-Public Use
  Company Number: None

PATIENT
  Age: 59 Year
  Sex: Male

DRUGS (1)
  1. ACETAMINOPHEN/HYDROCODONE [Suspect]
     Active Substance: ACETAMINOPHEN\HYDROCODONE
     Indication: PAIN
     Dosage: 1 TAB EVERY DAY PO
     Route: 048
     Dates: start: 20140914, end: 20141118

REACTIONS (2)
  - Toxicity to various agents [None]
  - Accidental overdose [None]

NARRATIVE: CASE EVENT DATE: 20141118
